FAERS Safety Report 7827028 (Version 3)
Quarter: 2013Q3

REPORT INFORMATION
  Report Type: Spontaneous
  Country: US (occurrence: US)
  Receive Date: 20110225
  Receipt Date: 20130918
  Transmission Date: 20140515
  Serious: Yes (Hospitalization, Other)
  Sender: FDA-Public Use
  Company Number: US-PFIZER INC-2011039119

PATIENT
  Age: 66 Year
  Sex: Female
  Weight: 68 kg

DRUGS (8)
  1. CALAN SR [Suspect]
     Indication: HYPERTENSION
     Dosage: 180 MG, 2X/DAY
     Route: 048
  2. CALAN SR [Suspect]
     Dosage: HALF OF 240 MG TABLET 3 TIMES A DAY
     Route: 048
     Dates: start: 20110303
  3. VERAPAMIL HCL [Suspect]
     Indication: HYPERTENSION
     Dosage: 180 MG, 2X/DAY
     Route: 048
  4. MOTRIN [Suspect]
     Indication: HEADACHE
     Dosage: 800 MG, UNK
     Route: 048
     Dates: start: 2011
  5. LOTENSIN [Concomitant]
     Indication: CHEST PAIN
     Dosage: 40 MG, 2X/DAY
     Route: 048
  6. LOTENSIN [Concomitant]
     Indication: HYPERTENSION
  7. PROTONIX [Concomitant]
     Dosage: 40 MG, UNK
  8. LORAZEPAM [Concomitant]
     Dosage: UNK, DAILY

REACTIONS (23)
  - Haemorrhage [Unknown]
  - Gastrooesophageal reflux disease [Unknown]
  - Oral surgery [Unknown]
  - Chest pain [Recovered/Resolved]
  - Dizziness [Recovered/Resolved]
  - Malaise [Recovered/Resolved]
  - Headache [Recovered/Resolved]
  - Anxiety [Recovered/Resolved]
  - Influenza [Recovered/Resolved]
  - Hypersensitivity [Recovered/Resolved]
  - Fear [Recovered/Resolved]
  - Nausea [Recovered/Resolved]
  - Vomiting [Unknown]
  - Nervousness [Unknown]
  - Thyroid disorder [Unknown]
  - Drug administration error [Unknown]
  - Headache [Not Recovered/Not Resolved]
  - Adverse drug reaction [Recovered/Resolved]
  - Migraine [Recovered/Resolved]
  - Crying [Recovered/Resolved]
  - Colonoscopy [Unknown]
  - Drug ineffective [Unknown]
  - Thyroid disorder [Unknown]
